FAERS Safety Report 11692123 (Version 3)
Quarter: 2015Q4

REPORT INFORMATION
  Report Type: Spontaneous
  Country: US (occurrence: US)
  Receive Date: 20151103
  Receipt Date: 20151215
  Transmission Date: 20160304
  Serious: Yes (Death, Hospitalization)
  Sender: FDA-Public Use
  Company Number: US-AXELLIA-000868

PATIENT
  Age: 47 Year
  Sex: Female
  Weight: 134.1 kg

DRUGS (3)
  1. WARFARIN [Concomitant]
     Active Substance: WARFARIN
  2. VANCOMYCIN XELLIA [Suspect]
     Active Substance: VANCOMYCIN
     Indication: CELLULITIS
     Dosage: DOSE: 750 MG, Q24
     Route: 041
     Dates: start: 20150810
  3. REMODULIN [Suspect]
     Active Substance: TREPROSTINIL
     Indication: PULMONARY ARTERIAL HYPERTENSION
     Dosage: 0.073 UNK,73 NG/KG/MIN?STRENGTH:10 MG/ML?ALSO RECEIVED 0.084 MCG/KG IV DRIP LOT: 2100664
     Route: 058
     Dates: start: 20130926

REACTIONS (11)
  - Infusion site oedema [Unknown]
  - Renal failure [Not Recovered/Not Resolved]
  - Abdominal distension [Unknown]
  - Hypersensitivity [Unknown]
  - Infusion site pain [Not Recovered/Not Resolved]
  - Death [Fatal]
  - Infusion site abscess [Not Recovered/Not Resolved]
  - Infusion site cellulitis [Unknown]
  - Weight increased [Unknown]
  - Disease progression [Unknown]
  - Pulmonary arterial hypertension [None]

NARRATIVE: CASE EVENT DATE: 2015
